FAERS Safety Report 22197456 (Version 3)
Quarter: 2025Q4

REPORT INFORMATION
  Report Type: Spontaneous
  Country: AU (occurrence: AU)
  Receive Date: 20230411
  Receipt Date: 20251124
  Transmission Date: 20260118
  Serious: Yes (Life-Threatening, Hospitalization, Other)
  Sender: PFIZER
  Company Number: AU-PFIZER INC-PV202300061821

PATIENT
  Sex: Female

DRUGS (1)
  1. LIDOCAINE HYDROCHLORIDE [Suspect]
     Active Substance: LIDOCAINE HYDROCHLORIDE
     Indication: Local anaesthesia
     Dosage: INJECTION(MOTHER^S ROUTE)
     Route: 064

REACTIONS (5)
  - Maternal exposure during delivery [Recovering/Resolving]
  - Toxicity to various agents [Recovering/Resolving]
  - Neonatal seizure [Recovering/Resolving]
  - Infantile apnoea [Recovering/Resolving]
  - Hypotonia neonatal [Recovering/Resolving]
